FAERS Safety Report 13038719 (Version 3)
Quarter: 2017Q1

REPORT INFORMATION
  Report Type: Spontaneous
  Country: US (occurrence: US)
  Receive Date: 20161219
  Receipt Date: 20170119
  Transmission Date: 20170428
  Serious: Yes (Other)
  Sender: FDA-Public Use
  Company Number: US-TAKEDA-2016MPI010486

PATIENT
  Age: 52 Year
  Sex: Male
  Weight: 113.38 kg

DRUGS (1)
  1. NINLARO [Suspect]
     Active Substance: IXAZOMIB
     Indication: PLASMA CELL MYELOMA
     Dosage: 4 MG, UNK
     Route: 048
     Dates: start: 20170110

REACTIONS (6)
  - Blindness unilateral [Unknown]
  - Cerebrovascular accident [Unknown]
  - Off label use [Unknown]
  - Dyspepsia [Unknown]
  - Abdominal pain upper [Unknown]
  - Haemoglobin abnormal [Unknown]

NARRATIVE: CASE EVENT DATE: 20161207
